FAERS Safety Report 15849368 (Version 1)
Quarter: 2019Q1

REPORT INFORMATION
  Report Type: Report from Study
  Country: IN (occurrence: IN)
  Receive Date: 20190121
  Receipt Date: 20190121
  Transmission Date: 20190417
  Serious: Yes (Death, Hospitalization)
  Sender: FDA-Public Use
  Company Number: IN-SA-2019SA012187

PATIENT
  Age: 63 Year
  Sex: Male

DRUGS (2)
  1. LANTUS [Concomitant]
     Active Substance: INSULIN GLARGINE
     Dosage: 13 U, QD
     Route: 058
  2. INSULIN GLARGINE [Suspect]
     Active Substance: INSULIN GLARGINE
     Indication: DIABETES MELLITUS
     Dosage: 13 U, QD
     Route: 058
     Dates: start: 20180922

REACTIONS (3)
  - Cerebral haemorrhage [Fatal]
  - Paralysis [Fatal]
  - Cerebral thrombosis [Fatal]
